FAERS Safety Report 12778988 (Version 1)
Quarter: 2016Q3

REPORT INFORMATION
  Report Type: Spontaneous
  Country: US (occurrence: US)
  Receive Date: 20160926
  Receipt Date: 20160926
  Transmission Date: 20161109
  Serious: No
  Sender: FDA-Public Use
  Company Number: US-JAZZ-2016-US-011404

PATIENT
  Sex: Male

DRUGS (14)
  1. ZITHROMAX [Concomitant]
     Active Substance: AZITHROMYCIN DIHYDRATE
  2. ABILIFY [Concomitant]
     Active Substance: ARIPIPRAZOLE
  3. CLARITIN [Concomitant]
     Active Substance: LORATADINE
  4. CLONAZEPAM. [Concomitant]
     Active Substance: CLONAZEPAM
  5. PROVIGIL [Concomitant]
     Active Substance: MODAFINIL
  6. ZYRTEC [Concomitant]
     Active Substance: CETIRIZINE HYDROCHLORIDE
  7. DAYTRANA [Concomitant]
     Active Substance: METHYLPHENIDATE
  8. MULTIVITAMINS [Concomitant]
     Active Substance: VITAMINS
  9. CIALIS [Concomitant]
     Active Substance: TADALAFIL
  10. CYMBALTA [Concomitant]
     Active Substance: DULOXETINE HYDROCHLORIDE
  11. VYVANSE [Concomitant]
     Active Substance: LISDEXAMFETAMINE DIMESYLATE
  12. XYREM [Suspect]
     Active Substance: SODIUM OXYBATE
     Indication: NARCOLEPSY
     Dosage: 2.25 G, BID
     Route: 048
     Dates: start: 201605
  13. PREDNISONE. [Concomitant]
     Active Substance: PREDNISONE
  14. KAPVAY [Concomitant]
     Active Substance: CLONIDINE HYDROCHLORIDE

REACTIONS (1)
  - Pharyngitis streptococcal [Not Recovered/Not Resolved]
